FAERS Safety Report 8329134-6 (Version None)
Quarter: 2012Q2

REPORT INFORMATION
  Report Type: 
  Country: None (occurrence: None)
  Receive Date: 20120502
  Receipt Date: 20120425
  Transmission Date: 20120825
  Serious: Yes (Hospitalization)
  Sender: FDA-Public Use
  Company Number: US-B.I. PHARMACEUTICALS,INC./RIDGEFIELD-2012-CN-00879CN

PATIENT
  Age: 57 Year
  Sex: Male

DRUGS (9)
  1. DIOVAN [Concomitant]
  2. PRADAXA [Suspect]
     Indication: DEEP VEIN THROMBOSIS
     Dosage: 300 MG
     Dates: start: 20120301
  3. CITALOPRAM [Concomitant]
  4. VENTOLIN [Concomitant]
  5. CRESTOR [Concomitant]
  6. OMEPRAZOLE [Concomitant]
  7. ZOPICLONE [Concomitant]
  8. HYDROCHLOROTHIAZIDE [Concomitant]
  9. ADVAIR DISKUS 100/50 [Concomitant]

REACTIONS (1)
  - CEREBROVASCULAR ACCIDENT [None]
